FAERS Safety Report 18293068 (Version 1)
Quarter: 2020Q3

REPORT INFORMATION
  Report Type: Spontaneous
  Country: US (occurrence: US)
  Receive Date: 20200921
  Receipt Date: 20200921
  Transmission Date: 20201103
  Serious: No
  Sender: FDA-Public Use
  Company Number: None

PATIENT
  Sex: Female

DRUGS (1)
  1. COPAXONE [Suspect]
     Active Substance: GLATIRAMER ACETATE

REACTIONS (7)
  - Drug ineffective [None]
  - Injection site pain [None]
  - Dysarthria [None]
  - Visual impairment [None]
  - Disease recurrence [None]
  - Skin atrophy [None]
  - Injection site swelling [None]
